FAERS Safety Report 16645616 (Version 1)
Quarter: 2019Q3

REPORT INFORMATION
  Report Type: Spontaneous
  Country: FR (occurrence: FR)
  Receive Date: 20190730
  Receipt Date: 20190730
  Transmission Date: 20191004
  Serious: Yes (Other)
  Sender: FDA-Public Use
  Company Number: FR-AUROBINDO-AUR-APL-2019-040220

PATIENT

DRUGS (13)
  1. DESLORATADINE MYLAN [Suspect]
     Active Substance: DESLORATADINE
     Indication: RHINITIS
     Dosage: 5 MILLIGRAM 1 AS NECEESARY
     Route: 048
     Dates: start: 20190426, end: 20190510
  2. HAVLANE [Concomitant]
     Active Substance: LOPRAZOLAM
     Indication: SLEEP DISORDER
     Dosage: 1 MILLIGRAM, ONCE A DAY 0-0-1
     Route: 048
  3. LEVOFLOXACINE ARROW FILM-COATED TABLETS 500MG [Suspect]
     Active Substance: LEVOFLOXACIN
     Indication: EPIDIDYMITIS
     Dosage: 1000 MILLIGRAM, ONCE A DAY
     Route: 048
     Dates: start: 20190405, end: 20190503
  4. LANSOPRAZOLE MYLAN [Suspect]
     Active Substance: LANSOPRAZOLE
     Indication: PROPHYLAXIS AGAINST GASTROINTESTINAL ULCER
     Dosage: 15 MILLIGRAM, ONCE A DAY 0-1-0
     Route: 048
     Dates: start: 20190410
  5. RIFADINE [Suspect]
     Active Substance: RIFAMPIN
     Indication: EPIDIDYMITIS
     Dosage: 1200 MILLIGRAM, ONCE A DAY 0-2-0-2
     Route: 048
     Dates: start: 20190405
  6. TRAMADOL PROLONGED RELEASE TABLETS [Suspect]
     Active Substance: TRAMADOL
     Indication: PAIN
     Dosage: 200 MILLIGRAM, ONCE A DAY(100 MILLIGRAM, BID)
     Route: 048
     Dates: start: 20190410
  7. LEVOFLOXACINE ARROW FILM-COATED TABLETS 500MG [Suspect]
     Active Substance: LEVOFLOXACIN
     Dosage: 500 MILLIGRAM, ONCE A DAY(1000 MILLIGRAM, QD)
     Route: 048
     Dates: start: 20190405, end: 20190503
  8. CONTRAMAL [Suspect]
     Active Substance: TRAMADOL HYDROCHLORIDE
     Dosage: 100 MILLIGRAM, ONCE A DAY 1-0-1
     Route: 048
     Dates: start: 20190410
  9. LOVENOX [Suspect]
     Active Substance: ENOXAPARIN SODIUM
     Indication: THROMBOSIS PROPHYLAXIS
     Dosage: 4000 INTERNATIONAL UNIT, ONCE A DAY
     Route: 058
     Dates: start: 20190405
  10. CONTRAMAL [Suspect]
     Active Substance: TRAMADOL HYDROCHLORIDE
     Indication: PAIN
     Dosage: 200 MILLIGRAM, ONCE A DAY 1-0-1
     Route: 048
     Dates: start: 20190410
  11. SODIUM ALGINATE;SODIUM BICARBONATE [Suspect]
     Active Substance: SODIUM ALGINATE\SODIUM BICARBONATE
     Indication: GASTROOESOPHAGEAL REFLUX DISEASE
     Dosage: 1 DOSAGE FORM SI BESOIN (MAX4/JOUR)
     Route: 048
     Dates: start: 20190406
  12. RIFADINE [Suspect]
     Active Substance: RIFAMPIN
     Dosage: 300MILLIGRAM, ONCE A DAY 0-2-0-2
     Route: 048
     Dates: start: 20190405
  13. DOLIPRANE [Concomitant]
     Active Substance: ACETAMINOPHEN
     Indication: PAIN
     Dosage: 500 DOSAGE FORM, AS NECESSARY(6 G?LULES/ JOUR ? LA DEMANDE)
     Route: 048

REACTIONS (1)
  - Rotator cuff syndrome [Recovering/Resolving]

NARRATIVE: CASE EVENT DATE: 20190503
